FAERS Safety Report 25268384 (Version 1)
Quarter: 2025Q2

REPORT INFORMATION
  Report Type: Spontaneous
  Country: US (occurrence: None)
  Receive Date: 20250502
  Receipt Date: 20250502
  Transmission Date: 20250716
  Serious: Yes (Hospitalization)
  Sender: FDA-CTU
  Company Number: None

PATIENT
  Age: 78 Year
  Sex: Male

DRUGS (1)
  1. NUPLAZID [Suspect]
     Active Substance: PIMAVANSERIN TARTRATE
     Indication: Parkinson^s disease
     Dosage: 34 MG DAILY ORAL
     Route: 048
     Dates: start: 20231213

REACTIONS (5)
  - Decubitus ulcer [None]
  - Pneumonia [None]
  - Pleural effusion [None]
  - Oxygen saturation decreased [None]
  - Weight decreased [None]

NARRATIVE: CASE EVENT DATE: 20250403
